FAERS Safety Report 24268867 (Version 5)
Quarter: 2025Q4

REPORT INFORMATION
  Report Type: Report from Study
  Country: BR (occurrence: BR)
  Receive Date: 20240830
  Receipt Date: 20251021
  Transmission Date: 20260117
  Serious: Yes (Other)
  Sender: TAKEDA
  Company Number: BR-TAKEDA-2023TUS017181

PATIENT
  Age: 58 Year
  Sex: Male

DRUGS (3)
  1. VEDOLIZUMAB [Suspect]
     Active Substance: VEDOLIZUMAB
     Indication: Colitis ulcerative
     Dosage: 300 MILLIGRAM, Q4WEEKS
     Dates: start: 20220101
  2. VEDOLIZUMAB [Suspect]
     Active Substance: VEDOLIZUMAB
     Dosage: 300 MILLIGRAM
  3. VEDOLIZUMAB [Suspect]
     Active Substance: VEDOLIZUMAB
     Dosage: 300 MILLIGRAM, Q4WEEKS
     Dates: start: 20230213

REACTIONS (14)
  - Colitis ulcerative [Unknown]
  - Arthralgia [Not Recovered/Not Resolved]
  - Dengue fever [Unknown]
  - Gout [Unknown]
  - Anxiety [Unknown]
  - Blood pressure decreased [Unknown]
  - Inappropriate schedule of product administration [Unknown]
  - Eosinophil count abnormal [Unknown]
  - Diarrhoea [Unknown]
  - Malaise [Unknown]
  - Dizziness [Unknown]
  - Asthenia [Unknown]
  - Influenza [Unknown]
  - Pruritus [Recovered/Resolved]

NARRATIVE: CASE EVENT DATE: 20230213
